FAERS Safety Report 25043453 (Version 1)
Quarter: 2025Q1

REPORT INFORMATION
  Report Type: Spontaneous
  Country: AU (occurrence: AU)
  Receive Date: 20250306
  Receipt Date: 20250306
  Transmission Date: 20250408
  Serious: Yes (Other)
  Sender: SANOFI AVENTIS
  Company Number: AU-SA-2025SA064580

PATIENT
  Age: 61 Year
  Sex: Female

DRUGS (6)
  1. HYDROCHLOROTHIAZIDE\IRBESARTAN [Suspect]
     Active Substance: HYDROCHLOROTHIAZIDE\IRBESARTAN
  2. METHOTREXATE [Suspect]
     Active Substance: METHOTREXATE
  3. PREDNISOLONE [Suspect]
     Active Substance: PREDNISOLONE
  4. PREGABALIN [Suspect]
     Active Substance: PREGABALIN
  5. SOLIFENACIN SUCCINATE [Suspect]
     Active Substance: SOLIFENACIN SUCCINATE
  6. SUMATRIPTAN SUCCINATE [Suspect]
     Active Substance: SUMATRIPTAN SUCCINATE

REACTIONS (8)
  - Optic neuritis [Unknown]
  - Ataxia [Unknown]
  - Central nervous system lesion [Unknown]
  - Diplopia [Unknown]
  - Haemorrhage [Unknown]
  - Tinnitus [Unknown]
  - Vertigo [Unknown]
  - Off label use [Unknown]
